FAERS Safety Report 24029433 (Version 1)
Quarter: 2024Q2

REPORT INFORMATION
  Report Type: Spontaneous
  Country: US (occurrence: None)
  Receive Date: 20240628
  Receipt Date: 20240628
  Transmission Date: 20240716
  Serious: No
  Sender: FDA-Public Use
  Company Number: None

PATIENT
  Age: 55 Year
  Sex: Female

DRUGS (1)
  1. OTEZLA [Suspect]
     Active Substance: APREMILAST
     Indication: Lichen planus
     Dosage: FREQUENCY : TWICE A DAY;?
     Route: 048
     Dates: start: 202406

REACTIONS (3)
  - Confusional state [None]
  - Dizziness [None]
  - Abdominal discomfort [None]
